FAERS Safety Report 24863899 (Version 2)
Quarter: 2025Q1

REPORT INFORMATION
  Report Type: Spontaneous
  Country: US (occurrence: US)
  Receive Date: 20250120
  Receipt Date: 20250124
  Transmission Date: 20250409
  Serious: No
  Sender: AMGEN
  Company Number: US-AMGEN-USASP2025011432

PATIENT
  Age: 41 Year
  Sex: Female

DRUGS (9)
  1. OTEZLA [Suspect]
     Active Substance: APREMILAST
     Indication: Psoriasis
     Route: 048
     Dates: start: 20210924
  2. OTEZLA [Suspect]
     Active Substance: APREMILAST
     Dosage: 30 MILLIGRAM, QD
     Route: 048
     Dates: start: 20230815
  3. VTAMA [Concomitant]
     Active Substance: TAPINAROF
  4. ACEBUTOLOL [Concomitant]
     Active Substance: ACEBUTOLOL
  5. CARDIZEM [Concomitant]
     Active Substance: DILTIAZEM HYDROCHLORIDE
  6. CUVITRU [Concomitant]
     Active Substance: HUMAN IMMUNOGLOBULIN G
  7. PLAQUENIL [Concomitant]
     Active Substance: HYDROXYCHLOROQUINE SULFATE
  8. TROKENDI XR [Concomitant]
     Active Substance: TOPIRAMATE
  9. ZANAFLEX [Concomitant]
     Active Substance: TIZANIDINE HYDROCHLORIDE

REACTIONS (2)
  - Diarrhoea [Not Recovered/Not Resolved]
  - Therapy non-responder [Not Recovered/Not Resolved]

NARRATIVE: CASE EVENT DATE: 20230815
